FAERS Safety Report 8096266-X (Version None)
Quarter: 2012Q1

REPORT INFORMATION
  Report Type: 
  Country: None (occurrence: None)
  Receive Date: 20120129
  Receipt Date: 20111219
  Transmission Date: 20120608
  Serious: No
  Sender: FDA-Public Use
  Company Number: US-ABBOTT-11P-163-0885941-00

PATIENT
  Sex: Female
  Weight: 80.358 kg

DRUGS (1)
  1. HUMIRA [Suspect]
     Indication: RHEUMATOID ARTHRITIS
     Dosage: EVERY 2.5 TO 3 WEEKS
     Route: 058

REACTIONS (3)
  - GINGIVAL BLEEDING [None]
  - GINGIVITIS [None]
  - CHEILITIS [None]
